FAERS Safety Report 4892028-2 (Version None)
Quarter: 2006Q1

REPORT INFORMATION
  Report Type: 
  Country: None (occurrence: None)
  Receive Date: 20060123
  Receipt Date: 20060113
  Transmission Date: 20060701
  Serious: Yes (Hospitalization)
  Sender: FDA-Public Use
  Company Number: 2006-01-0787

PATIENT
  Age: 42 Year
  Sex: Female

DRUGS (3)
  1. AERIUS (DESLORATADINE) TABLETS [Suspect]
     Indication: RHINITIS ALLERGIC
     Dosage: 5 MG ORAL
     Route: 048
     Dates: start: 20051028, end: 20051030
  2. LABETALOL HYDROCHLORIDE [Suspect]
     Dosage: 600 MG ORAL
     Route: 048
     Dates: start: 20051020
  3. OXAZEPAM [Concomitant]

REACTIONS (1)
  - HYPERTENSIVE CRISIS [None]
